FAERS Safety Report 26052787 (Version 1)
Quarter: 2025Q4

REPORT INFORMATION
  Report Type: Spontaneous
  Country: CN (occurrence: CN)
  Receive Date: 20251117
  Receipt Date: 20251117
  Transmission Date: 20260118
  Serious: Yes (Other)
  Sender: MYLAN
  Company Number: CN-MYLANLABS-2025M1097417

PATIENT
  Age: 35 Year
  Sex: Female

DRUGS (48)
  1. FONDAPARINUX [Suspect]
     Active Substance: FONDAPARINUX
     Indication: Anticoagulant therapy
     Dosage: 2.5 MILLIGRAM, QD
     Route: 058
  2. FONDAPARINUX [Suspect]
     Active Substance: FONDAPARINUX
     Dosage: 2.5 MILLIGRAM, QD
  3. FONDAPARINUX [Suspect]
     Active Substance: FONDAPARINUX
     Dosage: 2.5 MILLIGRAM, QD
  4. FONDAPARINUX [Suspect]
     Active Substance: FONDAPARINUX
     Dosage: 2.5 MILLIGRAM, QD
     Route: 058
  5. FONDAPARINUX [Suspect]
     Active Substance: FONDAPARINUX
     Dosage: 2.5 MILLIGRAM, Q36H
     Route: 058
  6. FONDAPARINUX [Suspect]
     Active Substance: FONDAPARINUX
     Dosage: 2.5 MILLIGRAM, Q36H
  7. FONDAPARINUX [Suspect]
     Active Substance: FONDAPARINUX
     Dosage: 2.5 MILLIGRAM, Q36H
  8. FONDAPARINUX [Suspect]
     Active Substance: FONDAPARINUX
     Dosage: 2.5 MILLIGRAM, Q36H
     Route: 058
  9. FONDAPARINUX [Suspect]
     Active Substance: FONDAPARINUX
     Dosage: 2.5 MILLIGRAM, QD
     Route: 058
  10. FONDAPARINUX [Suspect]
     Active Substance: FONDAPARINUX
     Dosage: 2.5 MILLIGRAM, QD
     Route: 058
  11. FONDAPARINUX [Suspect]
     Active Substance: FONDAPARINUX
     Dosage: 2.5 MILLIGRAM, QD
  12. FONDAPARINUX [Suspect]
     Active Substance: FONDAPARINUX
     Dosage: 2.5 MILLIGRAM, QD
  13. TACROLIMUS [Suspect]
     Active Substance: TACROLIMUS
     Indication: Antiphospholipid syndrome
     Dosage: 0.5 MILLIGRAM, QD
  14. TACROLIMUS [Suspect]
     Active Substance: TACROLIMUS
     Dosage: 0.5 MILLIGRAM, QD
  15. TACROLIMUS [Suspect]
     Active Substance: TACROLIMUS
     Dosage: 0.5 MILLIGRAM, QD
     Route: 048
  16. TACROLIMUS [Suspect]
     Active Substance: TACROLIMUS
     Dosage: 0.5 MILLIGRAM, QD
     Route: 048
  17. TACROLIMUS [Suspect]
     Active Substance: TACROLIMUS
     Dosage: 0.5 MILLIGRAM, BID
  18. TACROLIMUS [Suspect]
     Active Substance: TACROLIMUS
     Dosage: 0.5 MILLIGRAM, BID
  19. TACROLIMUS [Suspect]
     Active Substance: TACROLIMUS
     Dosage: 0.5 MILLIGRAM, BID
     Route: 048
  20. TACROLIMUS [Suspect]
     Active Substance: TACROLIMUS
     Dosage: 0.5 MILLIGRAM, BID
     Route: 048
  21. HYDROXYCHLOROQUINE SULFATE [Suspect]
     Active Substance: HYDROXYCHLOROQUINE SULFATE
     Indication: Antiphospholipid syndrome
     Dosage: 0.2 GRAM, BID
     Route: 048
  22. HYDROXYCHLOROQUINE SULFATE [Suspect]
     Active Substance: HYDROXYCHLOROQUINE SULFATE
     Dosage: 0.2 GRAM, BID
  23. HYDROXYCHLOROQUINE SULFATE [Suspect]
     Active Substance: HYDROXYCHLOROQUINE SULFATE
     Dosage: 0.2 GRAM, BID
  24. HYDROXYCHLOROQUINE SULFATE [Suspect]
     Active Substance: HYDROXYCHLOROQUINE SULFATE
     Dosage: 0.2 GRAM, BID
     Route: 048
  25. HYDROXYCHLOROQUINE SULFATE [Suspect]
     Active Substance: HYDROXYCHLOROQUINE SULFATE
     Dosage: 0.2 GRAM, BID
     Route: 048
  26. HYDROXYCHLOROQUINE SULFATE [Suspect]
     Active Substance: HYDROXYCHLOROQUINE SULFATE
     Dosage: 0.2 GRAM, BID
  27. HYDROXYCHLOROQUINE SULFATE [Suspect]
     Active Substance: HYDROXYCHLOROQUINE SULFATE
     Dosage: 0.2 GRAM, BID
  28. HYDROXYCHLOROQUINE SULFATE [Suspect]
     Active Substance: HYDROXYCHLOROQUINE SULFATE
     Dosage: 0.2 GRAM, BID
     Route: 048
  29. PREDNISONE ACETATE [Suspect]
     Active Substance: PREDNISONE ACETATE
     Indication: Antiphospholipid syndrome
     Dosage: 10 MILLIGRAM, QD
  30. PREDNISONE ACETATE [Suspect]
     Active Substance: PREDNISONE ACETATE
     Dosage: 10 MILLIGRAM, QD
  31. PREDNISONE ACETATE [Suspect]
     Active Substance: PREDNISONE ACETATE
     Dosage: 10 MILLIGRAM, QD
     Route: 048
  32. PREDNISONE ACETATE [Suspect]
     Active Substance: PREDNISONE ACETATE
     Dosage: 10 MILLIGRAM, QD
     Route: 048
  33. PREDNISONE ACETATE [Suspect]
     Active Substance: PREDNISONE ACETATE
     Dosage: 10 MILLIGRAM, QD
  34. PREDNISONE ACETATE [Suspect]
     Active Substance: PREDNISONE ACETATE
     Dosage: 10 MILLIGRAM, QD
  35. PREDNISONE ACETATE [Suspect]
     Active Substance: PREDNISONE ACETATE
     Dosage: 10 MILLIGRAM, QD
     Route: 048
  36. PREDNISONE ACETATE [Suspect]
     Active Substance: PREDNISONE ACETATE
     Dosage: 10 MILLIGRAM, QD
     Route: 048
  37. ASPIRIN [Suspect]
     Active Substance: ASPIRIN
     Indication: Antiplatelet therapy
     Dosage: 75 MILLIGRAM, PM (AT 11 WEEKS OF PREGNANCY CONTINUED UNTIL 35 WEEKS)
  38. ASPIRIN [Suspect]
     Active Substance: ASPIRIN
     Dosage: 75 MILLIGRAM, PM (AT 11 WEEKS OF PREGNANCY CONTINUED UNTIL 35 WEEKS)
     Route: 048
  39. ASPIRIN [Suspect]
     Active Substance: ASPIRIN
     Dosage: 75 MILLIGRAM, PM (AT 11 WEEKS OF PREGNANCY CONTINUED UNTIL 35 WEEKS)
     Route: 048
  40. ASPIRIN [Suspect]
     Active Substance: ASPIRIN
     Dosage: 75 MILLIGRAM, PM (AT 11 WEEKS OF PREGNANCY CONTINUED UNTIL 35 WEEKS)
  41. ENOXAPARIN [Suspect]
     Active Substance: ENOXAPARIN
     Indication: Product used for unknown indication
     Dosage: UNK, QD (4100 U, QD)
  42. ENOXAPARIN [Suspect]
     Active Substance: ENOXAPARIN
     Dosage: UNK, QD (4100 U, QD)
     Route: 065
  43. ENOXAPARIN [Suspect]
     Active Substance: ENOXAPARIN
     Dosage: UNK, QD (4100 U, QD)
     Route: 065
  44. ENOXAPARIN [Suspect]
     Active Substance: ENOXAPARIN
     Dosage: UNK, QD (4100 U, QD)
  45. LABETALOL [Suspect]
     Active Substance: LABETALOL
     Indication: Hypertension
     Dosage: 100 MILLIGRAM, QID (UNTIL DELIVERY)
  46. LABETALOL [Suspect]
     Active Substance: LABETALOL
     Dosage: 100 MILLIGRAM, QID (UNTIL DELIVERY)
     Route: 065
  47. LABETALOL [Suspect]
     Active Substance: LABETALOL
     Dosage: 100 MILLIGRAM, QID (UNTIL DELIVERY)
     Route: 065
  48. LABETALOL [Suspect]
     Active Substance: LABETALOL
     Dosage: 100 MILLIGRAM, QID (UNTIL DELIVERY)

REACTIONS (2)
  - Premature delivery [Unknown]
  - Maternal exposure during pregnancy [Unknown]
